FAERS Safety Report 21331346 (Version 4)
Quarter: 2022Q4

REPORT INFORMATION
  Report Type: Spontaneous
  Country: US (occurrence: US)
  Receive Date: 20220914
  Receipt Date: 20221017
  Transmission Date: 20230113
  Serious: No
  Sender: FDA-Public Use
  Company Number: US-UNITED THERAPEUTICS-UNT-2022-020588

PATIENT
  Age: 33 Year
  Sex: Female
  Weight: 52.154 kg

DRUGS (4)
  1. REMODULIN [Suspect]
     Active Substance: TREPROSTINIL
     Indication: Pulmonary arterial hypertension
     Dosage: 0.0275 ?G/KG (PRE-FILLED WITH 3ML/CASSETTE, PUMP RATE 34 MCL/HOUR), CONTINUING
     Route: 058
     Dates: start: 20220902
  2. REMODULIN [Suspect]
     Active Substance: TREPROSTINIL
     Dosage: UNK, CONTINUING
     Route: 058
     Dates: start: 202209
  3. REMODULIN [Suspect]
     Active Substance: TREPROSTINIL
     Dosage: UNKNOWN DOSE, PUMP RATE 18 MCL/HOUR (PRE-FILLED WITH 3ML/CASSETTE), CONTINUING
     Route: 058
     Dates: start: 202209
  4. SILDENAFIL [Concomitant]
     Active Substance: SILDENAFIL
     Indication: Product used for unknown indication
     Dosage: UNK
     Route: 065

REACTIONS (5)
  - Infusion site pain [Not Recovered/Not Resolved]
  - Dyspnoea [Unknown]
  - Poor quality sleep [Unknown]
  - Anxiety [Unknown]
  - Infusion site swelling [Recovering/Resolving]

NARRATIVE: CASE EVENT DATE: 20220901
